FAERS Safety Report 8186785 (Version 4)
Quarter: 2012Q4

REPORT INFORMATION
  Report Type: 
  Country: US (occurrence: US)
  Receive Date: 20111018
  Receipt Date: 20121024
  Transmission Date: 20130627
  Serious: Yes (Hospitalization, Other)
  Sender: FDA-Public Use
  Company Number: US-ACTELION-A-US2011-46958

PATIENT
  Age: 60 Year
  Sex: Female

DRUGS (4)
  1. TRACLEER [Suspect]
     Indication: PULMONARY ARTERIAL HYPERTENSION
     Dosage: UNK
     Route: 048
  2. REMODULIN [Suspect]
  3. REVATIO [Concomitant]
     Dosage: UNK
  4. COUMADIN [Concomitant]

REACTIONS (4)
  - Device leakage [Recovering/Resolving]
  - Device issue [Unknown]
  - Infusion site infection [Unknown]
  - Infusion site erythema [Unknown]
